FAERS Safety Report 22193096 (Version 1)
Quarter: 2023Q2

REPORT INFORMATION
  Report Type: Spontaneous
  Country: US (occurrence: None)
  Receive Date: 20230410
  Receipt Date: 20230410
  Transmission Date: 20230721
  Serious: Yes (Life-Threatening, Hospitalization)
  Sender: FDA-Public Use
  Company Number: None

PATIENT
  Age: 38 Year
  Sex: Female
  Weight: 56.25 kg

DRUGS (8)
  1. SERTRALINE [Suspect]
     Active Substance: SERTRALINE HYDROCHLORIDE
     Indication: Perinatal depression
     Dosage: OTHER QUANTITY : 1.5 TABLET(S);?
     Route: 048
     Dates: start: 20221201, end: 20230320
  2. SERTRALINE [Suspect]
     Active Substance: SERTRALINE HYDROCHLORIDE
     Indication: Postpartum anxiety
  3. ATARAX [Concomitant]
     Active Substance: HYDROXYZINE HYDROCHLORIDE
  4. VITAMINS [Concomitant]
     Active Substance: VITAMINS
  5. VITAMIN D3 [Concomitant]
     Active Substance: CHOLECALCIFEROL
  6. DIETARY SUPPLEMENT [Concomitant]
     Active Substance: DIETARY SUPPLEMENT
  7. CALCIUM [Concomitant]
     Active Substance: CALCIUM
  8. VITAMIN B6 [Concomitant]
     Active Substance: PYRIDOXINE HYDROCHLORIDE

REACTIONS (14)
  - Suicidal ideation [None]
  - Intrusive thoughts [None]
  - Confusional state [None]
  - Mood swings [None]
  - Apathy [None]
  - Insomnia [None]
  - Agitation [None]
  - Obsessive-compulsive symptom [None]
  - Tachyphrenia [None]
  - Depression [None]
  - Suicide attempt [None]
  - Near death experience [None]
  - Amnesia [None]
  - Self-injurious ideation [None]

NARRATIVE: CASE EVENT DATE: 20230320
